FAERS Safety Report 21362894 (Version 2)
Quarter: 2022Q4

REPORT INFORMATION
  Report Type: Report from Study
  Country: NL (occurrence: None)
  Receive Date: 20220922
  Receipt Date: 20221026
  Transmission Date: 20230113
  Serious: Yes (Other)
  Sender: FDA-Public Use
  Company Number: NL-ROCHE-3181919

PATIENT
  Age: 79 Year
  Sex: Male

DRUGS (4)
  1. RITUXIMAB [Suspect]
     Active Substance: RITUXIMAB
     Indication: Waldenstrom^s macroglobulinaemia
     Dosage: 18/SEP/2018, 17/OCT/2018, 13/NOV/2018, 11/DEC/2018, 08/JAN/2019, 09/APR/2019, 11/JUL/2019
     Route: 058
     Dates: start: 20190409, end: 20191024
  2. IXAZOMIB CITRATE [Suspect]
     Active Substance: IXAZOMIB CITRATE
     Indication: Waldenstrom^s macroglobulinaemia
     Route: 048
     Dates: start: 20180626, end: 20190108
  3. DEXAMETHASONE [Suspect]
     Active Substance: DEXAMETHASONE
     Indication: Waldenstrom^s macroglobulinaemia
     Route: 048
     Dates: start: 20180626, end: 20190108
  4. RITUXIMAB [Concomitant]
     Active Substance: RITUXIMAB
     Indication: Waldenstrom^s macroglobulinaemia
     Dosage: ON 21/AUG/2018, 100 MG 2X
     Route: 041

REACTIONS (1)
  - Basal cell carcinoma [Recovered/Resolved]

NARRATIVE: CASE EVENT DATE: 20220428
